FAERS Safety Report 13537119 (Version 1)
Quarter: 2017Q2

REPORT INFORMATION
  Report Type: Spontaneous
  Country: IT (occurrence: IT)
  Receive Date: 20170511
  Receipt Date: 20170511
  Transmission Date: 20170830
  Serious: Yes (Hospitalization)
  Sender: FDA-Public Use
  Company Number: IT-PFIZER INC-2017199669

PATIENT
  Age: 47 Year
  Sex: Female
  Weight: 40 kg

DRUGS (1)
  1. DEFEROXAMINE MESILATE [Suspect]
     Active Substance: DEFEROXAMINE MESYLATE
     Dosage: UNK
     Route: 058

REACTIONS (3)
  - Klebsiella infection [Recovered/Resolved]
  - Liver abscess [Recovered/Resolved]
  - Subcutaneous abscess [Recovered/Resolved]
